FAERS Safety Report 25795258 (Version 3)
Quarter: 2025Q4

REPORT INFORMATION
  Report Type: Report from Study
  Country: US (occurrence: US)
  Receive Date: 20250912
  Receipt Date: 20251111
  Transmission Date: 20260117
  Serious: Yes (Death, Other)
  Sender: ACADIA PHARMACEUTICALS
  Company Number: US-ACADIA PHARMACEUTICALS INC.-ACA-2025-PIM-010068

PATIENT
  Age: 82 Year
  Sex: Female

DRUGS (23)
  1. NUPLAZID [Suspect]
     Active Substance: PIMAVANSERIN TARTRATE
     Indication: Parkinson^s disease psychosis
     Dosage: 34 MILLIGRAM, QD
     Route: 048
     Dates: end: 20250911
  2. NUPLAZID [Suspect]
     Active Substance: PIMAVANSERIN TARTRATE
     Indication: Psychotic disorder due to a general medical condition
  3. NUPLAZID [Suspect]
     Active Substance: PIMAVANSERIN TARTRATE
     Indication: Delusion
  4. ELIQUIS [Concomitant]
     Active Substance: APIXABAN
  5. COMBIGAN [Concomitant]
     Active Substance: BRIMONIDINE TARTRATE\TIMOLOL MALEATE
  6. CALCITRIOL [Concomitant]
     Active Substance: CALCITRIOL
  7. FLECAINIDE ACETATE [Concomitant]
     Active Substance: FLECAINIDE ACETATE
  8. ATORVASTATIN CALCIUM [Concomitant]
     Active Substance: ATORVASTATIN CALCIUM
  9. CLONAZEPAM [Concomitant]
     Active Substance: CLONAZEPAM
  10. IMODIUM [Concomitant]
     Active Substance: LOPERAMIDE HYDROCHLORIDE
  11. LATANOPROST [Concomitant]
     Active Substance: LATANOPROST
  12. DULOXETINE [Concomitant]
     Active Substance: DULOXETINE
  13. MAGNESIUM [Concomitant]
     Active Substance: MAGNESIUM
  14. CALCIUM CARBONATE [Concomitant]
     Active Substance: CALCIUM CARBONATE
  15. MINERALS\VITAMINS [Concomitant]
     Active Substance: MINERALS\VITAMINS
  16. BUDESONIDE [Concomitant]
     Active Substance: BUDESONIDE
  17. SINEMET [Concomitant]
     Active Substance: CARBIDOPA\LEVODOPA
  18. CEPHALEXIN [Concomitant]
     Active Substance: CEPHALEXIN
  19. MELATONIN [Concomitant]
     Active Substance: MELATONIN
  20. MESALAMINE [Concomitant]
     Active Substance: MESALAMINE
  21. VITAMIN D NOS [Concomitant]
     Active Substance: CHOLECALCIFEROL\ERGOCALCIFEROL
  22. CHOLESTYRAMINE [Concomitant]
     Active Substance: CHOLESTYRAMINE
  23. DORZOLAMIDE [Concomitant]
     Active Substance: DORZOLAMIDE

REACTIONS (2)
  - Death [Fatal]
  - Product use issue [Unknown]

NARRATIVE: CASE EVENT DATE: 20250911
